FAERS Safety Report 15267020 (Version 1)
Quarter: 2018Q3

REPORT INFORMATION
  Report Type: Spontaneous
  Country: US (occurrence: US)
  Receive Date: 20180724
  Receipt Date: 20180724
  Transmission Date: 20181010
  Serious: Yes (Other)
  Sender: FDA-Public Use
  Company Number: None

PATIENT
  Age: 38 Year
  Sex: Female
  Weight: 76.5 kg

DRUGS (4)
  1. VALSARTAN AND HYDROCHLOROTHIAZIDE [Suspect]
     Active Substance: HYDROCHLOROTHIAZIDE\VALSARTAN
     Indication: FLUID RETENTION
     Dosage: ?          QUANTITY:30 CAPSULE(S);?
     Route: 048
  2. VALSARTAN AND HYDROCHLOROTHIAZIDE [Suspect]
     Active Substance: HYDROCHLOROTHIAZIDE\VALSARTAN
     Indication: HYPERTENSION
     Dosage: ?          QUANTITY:30 CAPSULE(S);?
     Route: 048
  3. BIOTE VITAMIN DK10 [Concomitant]
  4. SENTRY MULTIVITAMIN [Concomitant]

REACTIONS (3)
  - Headache [None]
  - Vertigo [None]
  - Dermatitis allergic [None]

NARRATIVE: CASE EVENT DATE: 20180702
